FAERS Safety Report 5053785-8 (Version None)
Quarter: 2006Q2

REPORT INFORMATION
  Report Type: 
  Country: None (occurrence: None)
  Receive Date: 20060614
  Receipt Date: 20060327
  Transmission Date: 20061013
  Serious: Yes (Other)
  Sender: FDA-Public Use
  Company Number: 442260

PATIENT
  Age: 66 Year
  Sex: Female

DRUGS (4)
  1. BONIVA [Suspect]
     Indication: DRUG USE FOR UNKNOWN INDICATION
     Dosage: 150 MG 1 PER MONTH ORAL
     Route: 048
  2. SINGULAIR [Concomitant]
  3. CLARITIN [Concomitant]
  4. VITAMIN NOS (MULTIVITAMIN NOS) [Concomitant]

REACTIONS (3)
  - LUNG INFILTRATION [None]
  - POSTNASAL DRIP [None]
  - URINE ODOUR ABNORMAL [None]
